FAERS Safety Report 12433784 (Version 2)
Quarter: 2016Q4

REPORT INFORMATION
  Report Type: Report from Study
  Country: MX (occurrence: MX)
  Receive Date: 20160603
  Receipt Date: 20161201
  Transmission Date: 20170207
  Serious: Yes (Other)
  Sender: FDA-Public Use
  Company Number: MX-REGENERON PHARMACEUTICALS, INC.-2016-17910

PATIENT

DRUGS (11)
  1. EYLEA [Suspect]
     Active Substance: AFLIBERCEPT
     Dosage: SIXTH APPLICATION
     Dates: start: 20160605, end: 20160605
  2. LOSARTAN. [Concomitant]
     Active Substance: LOSARTAN
     Indication: PRODUCT USED FOR UNKNOWN INDICATION
  3. EYLEA [Suspect]
     Active Substance: AFLIBERCEPT
     Dosage: THIRD APPLICATION
     Dates: start: 20150927, end: 20150927
  4. EYLEA [Suspect]
     Active Substance: AFLIBERCEPT
     Indication: NEOVASCULAR AGE-RELATED MACULAR DEGENERATION
     Dosage: FIRST APPLICATION
     Dates: start: 20150727, end: 20150727
  5. EYLEA [Suspect]
     Active Substance: AFLIBERCEPT
     Dosage: FIFTH APPLICATION
     Dates: start: 20160505, end: 20160505
  6. OMACOR [Concomitant]
     Active Substance: OMEGA-3-ACID ETHYL ESTERS
     Indication: PRODUCT USED FOR UNKNOWN INDICATION
  7. PAROXETINE. [Concomitant]
     Active Substance: PAROXETINE
     Indication: PRODUCT USED FOR UNKNOWN INDICATION
  8. CALCIUM [Concomitant]
     Active Substance: CALCIUM
     Indication: PRODUCT USED FOR UNKNOWN INDICATION
  9. EYLEA [Suspect]
     Active Substance: AFLIBERCEPT
     Dosage: SECOND APPLICATION
     Dates: start: 20150828, end: 20150828
  10. EYLEA [Suspect]
     Active Substance: AFLIBERCEPT
     Dosage: FOURTH APPLICATION
     Dates: start: 20160405, end: 20160405
  11. EYLEA [Suspect]
     Active Substance: AFLIBERCEPT
     Dosage: SEVENTH APPLICATION
     Dates: start: 20161115

REACTIONS (4)
  - Neovascular age-related macular degeneration [Not Recovered/Not Resolved]
  - Off label use [Not Recovered/Not Resolved]
  - Metamorphopsia [Not Recovered/Not Resolved]
  - Drug ineffective [Not Recovered/Not Resolved]

NARRATIVE: CASE EVENT DATE: 20160215
